FAERS Safety Report 4315854-7 (Version None)
Quarter: 2004Q1

REPORT INFORMATION
  Report Type: 
  Country: None (occurrence: None)
  Receive Date: 20040310
  Receipt Date: 20040225
  Transmission Date: 20041129
  Serious: Yes (Disabling)
  Sender: FDA-Public Use
  Company Number: 2004SE00379

PATIENT
  Age: 83 Year
  Sex: Male

DRUGS (2)
  1. NAROPIN [Suspect]
     Indication: POSTOPERATIVE ANALGESIA
     Dosage: 11.4 MG /HR ED
     Route: 008
     Dates: start: 20020201, end: 20020201
  2. ADRENALIN IN OIL INJ [Suspect]
     Indication: POSTOPERATIVE ANALGESIA
     Dosage: 11.4 UG /HR ED
     Route: 008
     Dates: start: 20020201, end: 20020201

REACTIONS (12)
  - AZOTAEMIA [None]
  - CARDIAC FAILURE [None]
  - CATHETER RELATED COMPLICATION [None]
  - DECUBITUS ULCER [None]
  - EXTRADURAL HAEMATOMA [None]
  - PARAPLEGIA [None]
  - PLEURISY [None]
  - PNEUMONIA [None]
  - POST PROCEDURAL COMPLICATION [None]
  - RESPIRATORY FAILURE [None]
  - SEPSIS [None]
  - SPINAL CORD COMPRESSION [None]
